FAERS Safety Report 15970567 (Version 1)
Quarter: 2019Q1

REPORT INFORMATION
  Report Type: Report from Study
  Country: US (occurrence: US)
  Receive Date: 20190215
  Receipt Date: 20190215
  Transmission Date: 20190418
  Serious: Yes (Hospitalization, Other)
  Sender: FDA-Public Use
  Company Number: US-AMAG PHARMACEUTICALS, INC.-AMAG201803305

PATIENT
  Age: 28 Year
  Sex: Female

DRUGS (7)
  1. ACETAMINOPHEN. [Concomitant]
     Active Substance: ACETAMINOPHEN
     Indication: PRODUCT USED FOR UNKNOWN INDICATION
     Dosage: 1300 MG, Q8H
     Route: 048
  2. ONDANSETRON [Concomitant]
     Active Substance: ONDANSETRON
     Indication: PRODUCT USED FOR UNKNOWN INDICATION
     Dosage: 8 MG, TID
     Route: 048
  3. MAKENA [Suspect]
     Active Substance: HYDROXYPROGESTERONE CAPROATE
     Indication: PREMATURE DELIVERY
     Dosage: 250 MG/ML, WEEKLY
     Route: 030
     Dates: start: 20180627
  4. FERROUS GLUCONATE [Concomitant]
     Active Substance: FERROUS GLUCONATE
     Indication: PRODUCT USED FOR UNKNOWN INDICATION
     Dosage: 325 MG, BID
     Route: 048
  5. PRENATAL VITAMINS [Concomitant]
     Active Substance: VITAMINS
     Indication: PREGNANCY
     Route: 048
  6. NICOTINE. [Concomitant]
     Active Substance: NICOTINE
     Indication: SMOKING CESSATION THERAPY
     Dosage: 2 MG, PRN
     Route: 048
  7. PROMETHAZINE [Concomitant]
     Active Substance: PROMETHAZINE\PROMETHAZINE HYDROCHLORIDE
     Indication: PRODUCT USED FOR UNKNOWN INDICATION
     Dosage: 12.5 MG, Q4H
     Route: 048

REACTIONS (8)
  - Presyncope [Unknown]
  - Abdominal pain [Recovered/Resolved]
  - Premature labour [Unknown]
  - Product dose omission [Unknown]
  - Urinary tract infection [Unknown]
  - Fatigue [Recovered/Resolved]
  - Anxiety [Unknown]
  - Depression [Unknown]

NARRATIVE: CASE EVENT DATE: 2018
